FAERS Safety Report 13470994 (Version 1)
Quarter: 2017Q2

REPORT INFORMATION
  Report Type: Spontaneous
  Country: SE (occurrence: SE)
  Receive Date: 20170424
  Receipt Date: 20170424
  Transmission Date: 20170830
  Serious: Yes (Other)
  Sender: FDA-Public Use
  Company Number: SE-SHIRE-SE201708931

PATIENT
  Age: 12 Year
  Sex: Male

DRUGS (1)
  1. ELVANSE [Suspect]
     Active Substance: LISDEXAMFETAMINE DIMESYLATE
     Indication: ATTENTION DEFICIT/HYPERACTIVITY DISORDER
     Dosage: 30 MG, UNKNOWN
     Route: 048
     Dates: start: 20170217, end: 20170322

REACTIONS (4)
  - Loss of consciousness [Unknown]
  - Fight in school [Unknown]
  - Intentional self-injury [Unknown]
  - Aggression [Unknown]

NARRATIVE: CASE EVENT DATE: 2017
